FAERS Safety Report 14965606 (Version 2)
Quarter: 2018Q2

REPORT INFORMATION
  Report Type: Report from Study
  Country: None (occurrence: US)
  Receive Date: 20180602
  Receipt Date: 20180629
  Transmission Date: 20180711
  Serious: Yes (Other)
  Sender: FDA-Public Use
  Company Number: US-ABBVIE-18K-163-2374050-00

PATIENT
  Age: 63 Year
  Sex: Female
  Weight: 69.46 kg

DRUGS (7)
  1. UPTRAVI [Concomitant]
     Active Substance: SELEXIPAG
     Indication: PULMONARY HYPERTENSION
  2. AMLODIPINE [Concomitant]
     Active Substance: AMLODIPINE BESYLATE
     Indication: PULMONARY HYPERTENSION
  3. HUMIRA [Suspect]
     Active Substance: ADALIMUMAB
     Indication: RHEUMATOID ARTHRITIS
     Route: 058
     Dates: start: 201711, end: 201712
  4. ADEMPAS [Concomitant]
     Active Substance: RIOCIGUAT
     Indication: PULMONARY HYPERTENSION
  5. HUMIRA [Suspect]
     Active Substance: ADALIMUMAB
     Route: 058
     Dates: start: 20180201
  6. LETAIRIS [Concomitant]
     Active Substance: AMBRISENTAN
     Indication: PULMONARY HYPERTENSION
  7. PLAQUENIL [Concomitant]
     Active Substance: HYDROXYCHLOROQUINE SULFATE
     Indication: RHEUMATOID ARTHRITIS

REACTIONS (15)
  - Injection site bruising [Unknown]
  - Cough [Recovering/Resolving]
  - Injection site discolouration [Not Recovered/Not Resolved]
  - Nasopharyngitis [Recovering/Resolving]
  - Injection site pruritus [Not Recovered/Not Resolved]
  - Injection site induration [Not Recovered/Not Resolved]
  - Productive cough [Recovering/Resolving]
  - Dyspnoea [Recovering/Resolving]
  - Rheumatoid factor [Unknown]
  - Injection site swelling [Not Recovered/Not Resolved]
  - Weight increased [Recovering/Resolving]
  - Oedema [Recovering/Resolving]
  - Peripheral swelling [Recovering/Resolving]
  - Pulmonary hypertension [Recovering/Resolving]
  - Influenza [Recovering/Resolving]

NARRATIVE: CASE EVENT DATE: 201711
